FAERS Safety Report 12388654 (Version 1)
Quarter: 2016Q2

REPORT INFORMATION
  Report Type: Spontaneous
  Country: US (occurrence: US)
  Receive Date: 20160520
  Receipt Date: 20160520
  Transmission Date: 20160815
  Serious: No
  Sender: FDA-Public Use
  Company Number: US-PFIZER INC-2016253598

PATIENT
  Age: 87 Year
  Sex: Male

DRUGS (2)
  1. SUTENT [Suspect]
     Active Substance: SUNITINIB MALATE
     Indication: RENAL CANCER METASTATIC
     Dosage: 50 MG, CYCLIC. 4 WEEKS ON AND 2 WEEKS OFF
     Dates: start: 201504
  2. SUTENT [Suspect]
     Active Substance: SUNITINIB MALATE
     Dosage: 50 MG, CYCLIC. 1 DAY ON 3 DAY OFF

REACTIONS (3)
  - Intentional underdose [Unknown]
  - Fatigue [Unknown]
  - Hypercalcaemia [Recovered/Resolved]
